FAERS Safety Report 21298604 (Version 1)
Quarter: 2022Q3

REPORT INFORMATION
  Report Type: Spontaneous
  Country: US (occurrence: None)
  Receive Date: 20220903
  Receipt Date: 20220903
  Transmission Date: 20221027
  Serious: Yes (Hospitalization)
  Sender: FDA-Public Use
  Company Number: None

PATIENT
  Age: 62 Year
  Sex: Male
  Weight: 98.9 kg

DRUGS (1)
  1. ALIMTA [Suspect]
     Active Substance: PEMETREXED DISODIUM
     Dates: end: 20220816

REACTIONS (4)
  - SARS-CoV-2 test positive [None]
  - Pneumonia [None]
  - Hypoxia [None]
  - Conjunctivitis [None]

NARRATIVE: CASE EVENT DATE: 20220830
